FAERS Safety Report 25924193 (Version 1)
Quarter: 2025Q4

REPORT INFORMATION
  Report Type: Spontaneous
  Country: EU (occurrence: EU)
  Receive Date: 20251015
  Receipt Date: 20251015
  Transmission Date: 20260118
  Serious: Yes (Life-Threatening)
  Sender: DR REDDYS
  Company Number: None

PATIENT
  Age: 74 Year
  Sex: Female
  Weight: 44.1 kg

DRUGS (12)
  1. CLOPIDOGREL [Suspect]
     Active Substance: CLOPIDOGREL BISULFATE
     Indication: Stent placement
     Dosage: TABLET, 75 MG (MILLIGRAM),
     Route: 048
     Dates: start: 20201103, end: 20250929
  2. ASPIRIN [Interacting]
     Active Substance: ASPIRIN
     Indication: Stent placement
     Dosage: TABLET, 80 MG (MILLIGRAM),
     Route: 048
     Dates: start: 20201103, end: 20250929
  3. METOPROLOL TABLET MGA [Concomitant]
     Indication: Product used for unknown indication
     Dosage: TABLET MET GEREGULEERDE AFGIFTE, 25 MG (MILLIGRAM)??MODIFIED-RELEASE TABLET, 25 MG (MILLIGRAM)
     Route: 048
  4. LINAGLIPTINE TABLET [Concomitant]
     Indication: Product used for unknown indication
     Dosage: TABLET, 5 MG (MILLIGRAM)
     Route: 048
  5. HYDROKININE DRAGEE [Concomitant]
     Indication: Product used for unknown indication
     Dosage: TABLET, 100 MG (MILLIGRAM)
     Route: 048
  6. FUROSEMIDE [Concomitant]
     Active Substance: FUROSEMIDE
     Indication: Product used for unknown indication
     Dosage: TABLET, 40 MG (MILLIGRAM)
     Route: 048
  7. FERROFUMARAAT TABLET [Concomitant]
     Indication: Product used for unknown indication
     Dosage: TABLET, 200 MG (MILLIGRAM)
     Route: 048
  8. ENALAPRIL [Concomitant]
     Active Substance: ENALAPRIL
     Indication: Product used for unknown indication
     Dosage: TABLET, 10 MG (MILLIGRAM)
     Route: 048
  9. ATORVASTATINE TABLET [Concomitant]
     Indication: Product used for unknown indication
     Dosage: TABLET, 20 MG (MILLIGRAM)
     Route: 048
  10. AMLODIPINE/VALSARTAN TABLET [Concomitant]
     Indication: Product used for unknown indication
     Dosage: TABLET, 5/80 MG (MILLIGRAM)
     Route: 048
  11. ALFACALCIDOL CAPSULE [Concomitant]
     Indication: Product used for unknown indication
     Dosage: CAPSULE, 0,25 G (MICROGRAM)
     Route: 048
  12. PANTOPRAZOL TABLET [Concomitant]
     Indication: Product used for unknown indication
     Dosage: MAAGSAPRESISTENTE TABLET, 20 MG (MILLIGRAM)
     Route: 048

REACTIONS (3)
  - Subdural haemorrhage [Not Recovered/Not Resolved]
  - Drug interaction [Not Recovered/Not Resolved]
  - Medication error [Not Recovered/Not Resolved]
